FAERS Safety Report 13526697 (Version 2)
Quarter: 2017Q2

REPORT INFORMATION
  Report Type: Report from Study
  Country: US (occurrence: US)
  Receive Date: 20170509
  Receipt Date: 20170520
  Transmission Date: 20170830
  Serious: No
  Sender: FDA-Public Use
  Company Number: US-AMGEN-USASL2017068220

PATIENT
  Age: 64 Year
  Sex: Female

DRUGS (1)
  1. ENBREL [Suspect]
     Active Substance: ETANERCEPT
     Indication: RHEUMATOID ARTHRITIS
     Dosage: 50 MG, QWK
     Route: 065
     Dates: start: 200008

REACTIONS (9)
  - Pain [Unknown]
  - Post procedural contusion [Unknown]
  - Skin cosmetic procedure [Unknown]
  - Eye contusion [Not Recovered/Not Resolved]
  - Chest discomfort [Unknown]
  - Drug dose omission [Unknown]
  - Increased tendency to bruise [Unknown]
  - Impaired healing [Unknown]
  - Arthralgia [Unknown]

NARRATIVE: CASE EVENT DATE: 2017
